FAERS Safety Report 14832293 (Version 1)
Quarter: 2018Q2

REPORT INFORMATION
  Report Type: Spontaneous
  Country: US (occurrence: JP)
  Receive Date: 20180501
  Receipt Date: 20180501
  Transmission Date: 20180711
  Serious: Yes (Hospitalization, Other)
  Sender: FDA-Public Use
  Company Number: US-SUNOVION-2018SUN001694

PATIENT
  Age: 72 Year
  Sex: Male

DRUGS (19)
  1. GLYCOPYRROLATE. [Suspect]
     Active Substance: GLYCOPYRROLATE
     Indication: PRODUCT USED FOR UNKNOWN INDICATION
     Dosage: UNK
     Route: 055
  2. NEXIUM [Concomitant]
     Active Substance: ESOMEPRAZOLE MAGNESIUM
     Dosage: UNK
  3. SINGULAIR [Concomitant]
     Active Substance: MONTELUKAST SODIUM
     Dosage: UNK
  4. BONOTEO [Concomitant]
     Active Substance: MINODRONIC ACID
     Dosage: UNK
  5. MAGNESIUM [Concomitant]
     Active Substance: MAGNESIUM
     Dosage: UNK
  6. PREDONINE [Concomitant]
     Active Substance: PREDNISOLONE
     Dosage: 30 MG, UNK
     Dates: start: 20180416
  7. SULTANOL [Concomitant]
     Active Substance: ALBUTEROL SULFATE
     Dosage: UNK
  8. BELSOMRA [Concomitant]
     Active Substance: SUVOREXANT
     Dosage: UNK
  9. LOXOPROFEN [Concomitant]
     Active Substance: LOXOPROFEN
     Dosage: UNK
  10. ALMETA [Concomitant]
     Active Substance: ALCLOMETASONE DIPROPIONATE
     Dosage: UNK
  11. ALVESCO [Concomitant]
     Active Substance: CICLESONIDE
     Dosage: UNK
  12. LANSOPRAZOLE. [Concomitant]
     Active Substance: LANSOPRAZOLE
     Dosage: UNK
  13. RELVAR [Concomitant]
     Active Substance: FLUTICASONE FUROATE\VILANTEROL TRIFENATATE
     Dosage: UNK
  14. XOLAIR [Suspect]
     Active Substance: OMALIZUMAB
     Indication: ASTHMA-CHRONIC OBSTRUCTIVE PULMONARY DISEASE OVERLAP SYNDROME
     Dosage: 600 MG, UNK
     Route: 058
     Dates: start: 20160729
  15. UNIPHYL [Concomitant]
     Active Substance: THEOPHYLLINE ANHYDROUS
     Dosage: UNK
  16. AZUNOL #1 [Concomitant]
     Dosage: UNK
  17. FEBURIC [Concomitant]
     Active Substance: FEBUXOSTAT
     Dosage: UNK
  18. CRESTOR [Concomitant]
     Active Substance: ROSUVASTATIN CALCIUM
     Dosage: UNK
  19. REBAMIPIDE [Concomitant]
     Active Substance: REBAMIPIDE
     Dosage: UNK

REACTIONS (5)
  - Renal impairment [Recovering/Resolving]
  - Purpura [Unknown]
  - Blood lactate dehydrogenase increased [Recovering/Resolving]
  - Platelet count decreased [Recovering/Resolving]
  - Malaise [Unknown]

NARRATIVE: CASE EVENT DATE: 201803
